FAERS Safety Report 26071086 (Version 2)
Quarter: 2025Q4

REPORT INFORMATION
  Report Type: Spontaneous
  Country: BR (occurrence: BR)
  Receive Date: 20251120
  Receipt Date: 20251201
  Transmission Date: 20260117
  Serious: Yes (Hospitalization)
  Sender: PFIZER
  Company Number: BR-PFIZER INC-PV202500136143

PATIENT
  Age: 36 Year
  Sex: Male
  Weight: 50 kg

DRUGS (2)
  1. INFLIXIMAB [Suspect]
     Active Substance: INFLIXIMAB
     Indication: Crohn^s disease
     Dosage: EVERY 8 WEEKS
  2. INFLIXIMAB [Suspect]
     Active Substance: INFLIXIMAB
     Dosage: EVERY 8 WEEKS
     Dates: start: 202508, end: 2025

REACTIONS (6)
  - Testicular cyst [Unknown]
  - Condition aggravated [Unknown]
  - Asthenia [Unknown]
  - Weight increased [Unknown]
  - Folliculitis [Unknown]
  - Off label use [Unknown]

NARRATIVE: CASE EVENT DATE: 20251101
